FAERS Safety Report 19849832 (Version 1)
Quarter: 2021Q3

REPORT INFORMATION
  Report Type: Spontaneous
  Country: LK (occurrence: LK)
  Receive Date: 20210918
  Receipt Date: 20210918
  Transmission Date: 20211014
  Serious: Yes (Hospitalization, Other)
  Sender: FDA-Public Use
  Company Number: LK-ACCORD-238236

PATIENT
  Age: 39 Year
  Sex: Male

DRUGS (3)
  1. TACROLIMUS. [Suspect]
     Active Substance: TACROLIMUS
     Indication: IMMUNOSUPPRESSANT DRUG THERAPY
     Dates: start: 2019, end: 202103
  2. PREDNISOLONE. [Suspect]
     Active Substance: PREDNISOLONE
     Indication: IMMUNOSUPPRESSANT DRUG THERAPY
     Dates: start: 2019
  3. MYCOPHENOLIC ACID. [Suspect]
     Active Substance: MYCOPHENOLIC ACID
     Indication: IMMUNOSUPPRESSANT DRUG THERAPY
     Dates: start: 2019, end: 202103

REACTIONS (13)
  - Bronchopulmonary aspergillosis [Unknown]
  - Parotitis [Unknown]
  - COVID-19 pneumonia [Recovered/Resolved]
  - Parotid abscess [Unknown]
  - Pneumothorax [Unknown]
  - Pleural thickening [Unknown]
  - Haemodynamic instability [Unknown]
  - Acute respiratory distress syndrome [Unknown]
  - Pleural effusion [Unknown]
  - Metabolic acidosis [Unknown]
  - Lymphopenia [Unknown]
  - Respiratory failure [Unknown]
  - Disseminated tuberculosis [Unknown]

NARRATIVE: CASE EVENT DATE: 2021
